APPROVED DRUG PRODUCT: MIDAZOLAM HYDROCHLORIDE
Active Ingredient: MIDAZOLAM HYDROCHLORIDE
Strength: EQ 5MG BASE/ML
Dosage Form/Route: INJECTABLE;INJECTION
Application: A208878 | Product #001
Applicant: FRESENIUS KABI USA LLC
Approved: Mar 28, 2017 | RLD: No | RS: No | Type: DISCN